FAERS Safety Report 11857746 (Version 1)
Quarter: 2015Q4

REPORT INFORMATION
  Report Type: Spontaneous
  Country: US (occurrence: None)
  Receive Date: 20151221
  Receipt Date: 20151221
  Transmission Date: 20160305
  Serious: Yes (Hospitalization)
  Sender: FDA-Public Use
  Company Number: None

PATIENT
  Age: 66 Year
  Sex: Female

DRUGS (6)
  1. EMEND [Concomitant]
     Active Substance: APREPITANT
  2. DOXORUBICIN [Concomitant]
     Active Substance: DOXORUBICIN
  3. MESNA. [Concomitant]
     Active Substance: MESNA
  4. DEX/ZOFRAN [Concomitant]
  5. IFOSFAMIDE. [Suspect]
     Active Substance: IFOSFAMIDE
     Indication: SARCOMA
     Dosage: 3.9G/3 DOSES  QD INTRAVENOUS
     Route: 042
     Dates: start: 20150728, end: 20150730
  6. IFOSFAMIDE. [Concomitant]
     Active Substance: IFOSFAMIDE

REACTIONS (3)
  - Myoclonus [None]
  - Neurotoxicity [None]
  - Aphasia [None]

NARRATIVE: CASE EVENT DATE: 20150728
